FAERS Safety Report 8535708-X (Version None)
Quarter: 2012Q3

REPORT INFORMATION
  Report Type: 
  Country: None (occurrence: None)
  Receive Date: 20120725
  Receipt Date: 20120723
  Transmission Date: 20120928
  Serious: Yes (Hospitalization)
  Sender: FDA-Public Use
  Company Number: US-PFIZER INC-2012177971

PATIENT

DRUGS (1)
  1. GEODON [Suspect]
     Dosage: 80 MG, 2X/DAY
     Route: 048

REACTIONS (1)
  - AGITATION [None]
